FAERS Safety Report 7758896-1 (Version None)
Quarter: 2011Q3

REPORT INFORMATION
  Report Type: 
  Country: None (occurrence: None)
  Receive Date: 20110915
  Receipt Date: 20110913
  Transmission Date: 20111222
  Serious: Yes (Hospitalization)
  Sender: FDA-Public Use
  Company Number: 2011NUEUSA00029

PATIENT
  Age: 71 Year
  Sex: Female
  Weight: 80.3 kg

DRUGS (11)
  1. DIGOXIN [Concomitant]
  2. BACLOFEN [Concomitant]
  3. BOTOX (BOTULINUM TOXIN TYPE A) [Concomitant]
  4. METFORMIN HCL [Concomitant]
  5. SIMVASTATIN [Concomitant]
  6. COUMADIN [Concomitant]
  7. NUEDEXTA [Suspect]
     Indication: AFFECT LABILITY
     Dosage: 1 CAP, SINGLE, ORAL
     Route: 048
     Dates: start: 20110725, end: 20110725
  8. LIDODERM [Concomitant]
  9. FOLIC ACID [Concomitant]
  10. RAMIPRIL [Concomitant]
  11. REMERON [Concomitant]

REACTIONS (3)
  - ATRIAL FIBRILLATION [None]
  - VOMITING [None]
  - GRAND MAL CONVULSION [None]
